FAERS Safety Report 5090185-9 (Version None)
Quarter: 2006Q3

REPORT INFORMATION
  Report Type: 
  Country: None (occurrence: None)
  Receive Date: 20060828
  Receipt Date: 20060823
  Transmission Date: 20061208
  Serious: Yes (Other)
  Sender: FDA-Public Use
  Company Number: US-GLAXOSMITHKLINE-A0617827A

PATIENT
  Sex: Female

DRUGS (1)
  1. COREG [Suspect]
     Indication: DRUG USE FOR UNKNOWN INDICATION
     Route: 048
     Dates: end: 20060601

REACTIONS (4)
  - CARDIAC FAILURE [None]
  - EXERCISE TOLERANCE DECREASED [None]
  - PHARMACEUTICAL PRODUCT COMPLAINT [None]
  - TACHYCARDIA [None]
